FAERS Safety Report 5424747-3 (Version None)
Quarter: 2007Q3

REPORT INFORMATION
  Report Type: 
  Country: None (occurrence: None)
  Receive Date: 20070824
  Receipt Date: 20070822
  Transmission Date: 20080115
  Serious: Yes (Other)
  Sender: FDA-Public Use
  Company Number: GB-BAYER-200710896BNE

PATIENT
  Age: 60 Year
  Sex: Male
  Weight: 66 kg

DRUGS (8)
  1. ADALAT [Suspect]
     Indication: HYPERTENSION
     Route: 048
     Dates: start: 20070626, end: 20070718
  2. ASPIRIN [Concomitant]
     Route: 048
     Dates: start: 20000101
  3. ATENOLOL [Concomitant]
     Indication: HYPERTENSION
     Route: 048
     Dates: start: 20000101
  4. CALCIUM CARBONATE [Concomitant]
     Indication: OSTEOPENIA
     Dates: start: 20030101
  5. CODEINE PHOSPHATE AND ACETAMINOPHEN [Concomitant]
     Indication: OSTEOARTHRITIS
     Route: 048
     Dates: start: 19940101
  6. LACTULOSE [Concomitant]
     Indication: CONSTIPATION
     Dosage: TOTAL DAILY DOSE: 30 ML
     Route: 048
     Dates: start: 19980101
  7. SERETIDE [Concomitant]
     Indication: ASTHMA
     Route: 055
     Dates: start: 20000101
  8. VENTOLIN [Concomitant]
     Indication: ASTHMA
     Route: 055
     Dates: start: 20000101

REACTIONS (2)
  - ARTHRALGIA [None]
  - HYPERHIDROSIS [None]
